FAERS Safety Report 23321470 (Version 1)
Quarter: 2023Q4

REPORT INFORMATION
  Report Type: Spontaneous
  Country: CN (occurrence: CN)
  Receive Date: 20231220
  Receipt Date: 20231220
  Transmission Date: 20240110
  Serious: Yes (Hospitalization, Other)
  Sender: FDA-Public Use
  Company Number: CN-PFIZER INC-PV202300203539

PATIENT
  Age: 51 Year
  Sex: Male
  Weight: 39 kg

DRUGS (4)
  1. IRINOTECAN [Suspect]
     Active Substance: IRINOTECAN
     Indication: Neoplasm
     Dosage: 160 MG, 1X/DAY
     Route: 041
     Dates: start: 20231202, end: 20231202
  2. IRINOTECAN [Suspect]
     Active Substance: IRINOTECAN
     Indication: Chemotherapy
  3. CADONILIMAB [Concomitant]
     Active Substance: CADONILIMAB
     Dosage: 375 MG (D1)
     Route: 041
  4. APATINIB [Concomitant]
     Active Substance: APATINIB
     Dosage: 0.5G QD PO, Q3W
     Route: 048

REACTIONS (3)
  - Myelosuppression [Recovering/Resolving]
  - Diarrhoea [Recovering/Resolving]
  - Blood pressure immeasurable [Recovering/Resolving]

NARRATIVE: CASE EVENT DATE: 20231206
